FAERS Safety Report 6240761-2 (Version None)
Quarter: 2009Q2

REPORT INFORMATION
  Report Type: 
  Country: None (occurrence: None)
  Receive Date: 20090623
  Receipt Date: 20090611
  Transmission Date: 20091009
  Serious: Yes (Other)
  Sender: FDA-Public Use
  Company Number: JP-PFIZER INC-2009226728

PATIENT
  Age: 43 Year

DRUGS (1)
  1. SULPERAZON [Suspect]
     Dates: start: 20090127, end: 20090130

REACTIONS (2)
  - AMNESIA [None]
  - ANAPHYLACTIC SHOCK [None]
